FAERS Safety Report 5267427-X (Version None)
Quarter: 2007Q1

REPORT INFORMATION
  Report Type: 
  Country: None (occurrence: None)
  Receive Date: 20070316
  Receipt Date: 20070307
  Transmission Date: 20070707
  Serious: Yes (Other)
  Sender: FDA-Public Use
  Company Number: JP-ROCHE-483307

PATIENT
  Age: 12 Year
  Sex: Male
  Weight: 45 kg

DRUGS (2)
  1. TAMIFLU [Suspect]
     Route: 048
     Dates: start: 20070208, end: 20070208
  2. CALONAL [Concomitant]
     Dosage: GENERIC NAME REPORTED AS ACETAMINOPHEN. CALONAL WAS TAKEN ONCE.
     Route: 048
     Dates: start: 20070208, end: 20070208

REACTIONS (2)
  - ABNORMAL BEHAVIOUR [None]
  - SLEEP TERROR [None]
